FAERS Safety Report 10985850 (Version 1)
Quarter: 2015Q2

REPORT INFORMATION
  Report Type: Spontaneous
  Country: US (occurrence: US)
  Receive Date: 20150404
  Receipt Date: 20150404
  Transmission Date: 20150821
  Serious: No
  Sender: FDA-Public Use
  Company Number: US-SA-2014SA112582

PATIENT
  Age: 60 Year
  Sex: Female
  Weight: 140 kg

DRUGS (9)
  1. HYDROCHLOROTHIAZIDE WITH TRIAMTERENE [Concomitant]
     Active Substance: HYDROCHLOROTHIAZIDE\TRIAMTERENE
     Indication: FLUID RETENTION
     Dosage: 37.5/25 1X DAY
     Route: 065
     Dates: start: 1995
  2. LOSARTAN [Concomitant]
     Active Substance: LOSARTAN
     Indication: STRESS AT WORK
     Dosage: SPRING 2014
     Route: 065
     Dates: start: 2014
  3. NASACORT AQ [Concomitant]
     Active Substance: TRIAMCINOLONE ACETONIDE
     Indication: MULTIPLE ALLERGIES
     Dosage: 2 APPROX 2006
     Route: 065
     Dates: start: 2006
  4. LEFLUNOMIDE. [Concomitant]
     Active Substance: LEFLUNOMIDE
     Indication: OSTEOARTHRITIS
     Dosage: SPRING 2013
     Route: 065
     Dates: start: 2013
  5. LOSARTAN [Concomitant]
     Active Substance: LOSARTAN
     Indication: BLOOD PRESSURE
     Dosage: SPRING 2014
     Route: 065
     Dates: start: 2014
  6. PREMARIN [Concomitant]
     Active Substance: ESTROGENS, CONJUGATED
     Indication: HYSTERECTOMY
     Route: 065
     Dates: start: 2001
  7. ALLEGRA-D [Suspect]
     Active Substance: FEXOFENADINE\PSEUDOEPHEDRINE
     Indication: MULTIPLE ALLERGIES
     Dosage: 1 DAILTY ; 12 HR: SOME TIMES USES 2 DAILY?TAKEN TO: FALL 2014
     Route: 048
     Dates: end: 2014
  8. LEFLUNOMIDE. [Concomitant]
     Active Substance: LEFLUNOMIDE
     Indication: PAIN
     Dosage: SPRING 2013
     Route: 065
     Dates: start: 2013
  9. PREDNISONE. [Concomitant]
     Active Substance: PREDNISONE
     Indication: SARCOIDOSIS
     Route: 065
     Dates: start: 1995, end: 2014

REACTIONS (2)
  - Medication residue present [Unknown]
  - Drug ineffective [Unknown]
